FAERS Safety Report 14270412 (Version 2)
Quarter: 2018Q3

REPORT INFORMATION
  Report Type: Spontaneous
  Country: JP (occurrence: JP)
  Receive Date: 20171211
  Receipt Date: 20180809
  Transmission Date: 20181010
  Serious: No
  Sender: FDA-Public Use
  Company Number: JP-OTSUKA-JP-2011-10389

PATIENT
  Sex: Female
  Weight: 75 kg

DRUGS (6)
  1. ABILIFY [Suspect]
     Active Substance: ARIPIPRAZOLE
     Indication: SCHIZOPHRENIA
     Dosage: 3 MG, QD
     Route: 048
     Dates: start: 2010, end: 20110212
  2. RISPERIDONE. [Concomitant]
     Active Substance: RISPERIDONE
     Indication: DELUSION
     Dosage: 4 ML, QD
     Route: 048
     Dates: start: 20110218, end: 20110307
  3. RISPERDAL [Concomitant]
     Active Substance: RISPERIDONE
     Indication: DELUSION
     Dosage: 1 MG, QD
     Route: 048
     Dates: end: 20110212
  4. RISPERDAL [Concomitant]
     Active Substance: RISPERIDONE
     Dosage: 1 MG, QD
     Route: 048
     Dates: end: 20110213
  5. RISPERDAL [Concomitant]
     Active Substance: RISPERIDONE
     Dosage: 2 MG, QD
     Route: 048
     Dates: start: 20110308
  6. ABILIFY [Suspect]
     Active Substance: ARIPIPRAZOLE
     Indication: DELUSION

REACTIONS (1)
  - Maternal exposure during pregnancy [Unknown]
